FAERS Safety Report 8732015 (Version 2)
Quarter: 2012Q4

REPORT INFORMATION
  Report Type: Spontaneous
  Country: US (occurrence: None)
  Receive Date: 20120801
  Receipt Date: 20120821
  Transmission Date: 20130627
  Serious: Yes (Hospitalization, Other)
  Sender: FDA-Public Use
  Company Number: ADR-2012-01386

PATIENT
  Sex: Male

DRUGS (2)
  1. LIORESAL [Suspect]
     Indication: MUSCLE SPASTICITY
     Dosage: 800 MCG/DAY
  2. LIORESAL [Suspect]
     Indication: SPINAL CORD INJURY
     Dosage: 800 MCG/DAY

REACTIONS (5)
  - Intracranial hypotension [None]
  - Implant site swelling [None]
  - Medical device complication [None]
  - Device damage [None]
  - Device leakage [None]
